FAERS Safety Report 5624943-6 (Version None)
Quarter: 2008Q1

REPORT INFORMATION
  Report Type: 
  Country: None (occurrence: None)
  Receive Date: 20080213
  Receipt Date: 20080201
  Transmission Date: 20080703
  Serious: Yes (Other)
  Sender: FDA-Public Use
  Company Number: GB-PFIZER INC-2008011076

PATIENT
  Sex: Female

DRUGS (3)
  1. ZYVOX [Suspect]
  2. HMG COA REDUCTASE INHIBITORS [Concomitant]
  3. ALL OTHER THERAPEUTIC PRODUCTS [Concomitant]

REACTIONS (1)
  - ACUTE HEPATIC FAILURE [None]
